FAERS Safety Report 4279082-6 (Version None)
Quarter: 2004Q1

REPORT INFORMATION
  Report Type: 
  Country: None (occurrence: None)
  Receive Date: 20040126
  Receipt Date: 20040119
  Transmission Date: 20041129
  Serious: Yes (Disabling)
  Sender: FDA-Public Use
  Company Number: WAES 0401GBR00138

PATIENT
  Sex: Female

DRUGS (1)
  1. FOSAMAX [Suspect]
     Indication: OSTEOPOROSIS
     Route: 048
     Dates: start: 20031101, end: 20031221

REACTIONS (7)
  - GINGIVITIS [None]
  - GLOSSITIS [None]
  - INFLAMMATION [None]
  - MALAISE [None]
  - PSORIASIS [None]
  - STOMACH DISCOMFORT [None]
  - STOMATITIS [None]
